FAERS Safety Report 6415839-0 (Version None)
Quarter: 2009Q4

REPORT INFORMATION
  Report Type: 
  Country: None (occurrence: None)
  Receive Date: 20091022
  Receipt Date: 20091006
  Transmission Date: 20100525
  Serious: Yes (Other)
  Sender: FDA-Public Use
  Company Number: B0598034A

PATIENT
  Age: 52 Year
  Sex: Male

DRUGS (17)
  1. ZIDOVUDINE [Suspect]
     Indication: HIV INFECTION
  2. LAMIVUDINE [Suspect]
     Indication: HIV INFECTION
  3. ABACAVIR SULFATE [Suspect]
     Indication: HIV INFECTION
  4. DIDANOSINE [Suspect]
     Indication: HIV INFECTION
  5. STAVUDINE [Suspect]
     Indication: HIV INFECTION
  6. NEVIRAPINE [Suspect]
     Indication: HIV INFECTION
  7. RESCRIPTOR [Suspect]
     Indication: HIV INFECTION
  8. EFAVIRENZ [Suspect]
     Indication: HIV INFECTION
  9. INDINIVIR SULFATE [Suspect]
     Indication: HIV INFECTION
  10. SAQUINAVIR (FORMULATION UNKNOWN) (SAQUINAVIR) [Suspect]
     Indication: HIV INFECTION
  11. NELFINAVIR MESYLATE [Suspect]
     Indication: HIV INFECTION
  12. LOPINAVIR (FORMULATION UNKNOWN) (LOPINAVIR) [Suspect]
     Indication: HIV INFECTION
  13. RITONAVIR [Suspect]
     Indication: HIV INFECTION
  14. TENOFOVIR DISOPROXIL FUMARATE [Suspect]
     Indication: HIV INFECTION
  15. DARUNAVIR (FORMULATION UNKNOWN) (DARUNAVIR) [Suspect]
     Indication: HIV INFECTION
  16. ETRAVIRINE (FORMULATION UNKNOWN) (ETRAVIRINE) [Suspect]
     Indication: HIV INFECTION
  17. RALTEGRAVIR (FORMULATION UNKNOWN) (RALTEGRAVIR) [Suspect]
     Indication: HIV INFECTION

REACTIONS (6)
  - BLOOD LACTIC ACID INCREASED [None]
  - DIPLOPIA [None]
  - EYELID PTOSIS [None]
  - LIPODYSTROPHY ACQUIRED [None]
  - MITOCHONDRIAL TOXICITY [None]
  - OPHTHALMOPLEGIA [None]
